FAERS Safety Report 10050329 (Version 1)
Quarter: 2014Q2

REPORT INFORMATION
  Report Type: Spontaneous
  Country: JP (occurrence: JP)
  Receive Date: 20140401
  Receipt Date: 20140401
  Transmission Date: 20141212
  Serious: Yes (Hospitalization)
  Sender: FDA-Public Use
  Company Number: JP-ASTRAZENECA-2014SE21557

PATIENT
  Age: 72 Year
  Sex: Male

DRUGS (1)
  1. SYMBICORT TURBUHALER [Suspect]
     Indication: ASTHMA
     Dosage: 4 INHALATIONS TWICE DAILY
     Route: 055

REACTIONS (2)
  - Asthma [Recovered/Resolved]
  - Dry mouth [Unknown]
